FAERS Safety Report 18396104 (Version 1)
Quarter: 2020Q4

REPORT INFORMATION
  Report Type: Spontaneous
  Country: US (occurrence: US)
  Receive Date: 20201019
  Receipt Date: 20201019
  Transmission Date: 20210114
  Serious: Yes (Hospitalization, Other)
  Sender: FDA-Public Use
  Company Number: US-VALIDUS PHARMACEUTICALS LLC-US-2020VAL000825

PATIENT

DRUGS (4)
  1. VELETRI [Suspect]
     Active Substance: EPOPROSTENOL
     Dosage: 11 NG/KG, QM
     Route: 042
  2. VELETRI [Suspect]
     Active Substance: EPOPROSTENOL
     Indication: PULMONARY ARTERIAL HYPERTENSION
     Dosage: 7 NG/KG, QMN
     Route: 042
  3. VELETRI [Suspect]
     Active Substance: EPOPROSTENOL
     Dosage: 9 NG/KG, QM
     Route: 042
  4. LASIX [Suspect]
     Active Substance: FUROSEMIDE
     Indication: PRODUCT USED FOR UNKNOWN INDICATION
     Dosage: UNK
     Route: 065

REACTIONS (12)
  - Fall [Recovered/Resolved]
  - Pain in jaw [Unknown]
  - Facial pain [Unknown]
  - Pulmonary oedema [Unknown]
  - Cough [Unknown]
  - Dyspnoea [Unknown]
  - Localised oedema [Unknown]
  - Back pain [Unknown]
  - Swelling [Unknown]
  - Syncope [Unknown]
  - Pleural effusion [Unknown]
  - Fluid retention [Unknown]

NARRATIVE: CASE EVENT DATE: 202008
